FAERS Safety Report 22610403 (Version 1)
Quarter: 2023Q2

REPORT INFORMATION
  Report Type: Spontaneous
  Country: US (occurrence: US)
  Receive Date: 20230616
  Receipt Date: 20230616
  Transmission Date: 20230721
  Serious: No
  Sender: FDA-Public Use
  Company Number: US-BAYER-2023A083410

PATIENT
  Age: 24 Year
  Sex: Female

DRUGS (1)
  1. KYLEENA [Suspect]
     Active Substance: LEVONORGESTREL
     Indication: Contraception
     Dosage: 17.5?G/DAY
     Route: 015
     Dates: start: 20230601, end: 20230601

REACTIONS (4)
  - Malaise [Unknown]
  - Procedural dizziness [Unknown]
  - Procedural nausea [Unknown]
  - Complication of device insertion [Unknown]

NARRATIVE: CASE EVENT DATE: 20230601
